FAERS Safety Report 7893471-X (Version None)
Quarter: 2011Q4

REPORT INFORMATION
  Report Type: 
  Country: None (occurrence: None)
  Receive Date: 20111104
  Receipt Date: 20111031
  Transmission Date: 20120403
  Serious: Yes (Hospitalization, Other)
  Sender: FDA-Public Use
  Company Number: US-ALEXION-A201101584

PATIENT
  Sex: Male

DRUGS (1)
  1. SOLIRIS [Suspect]
     Indication: PAROXYSMAL NOCTURNAL HAEMOGLOBINURIA
     Dosage: UNK
     Route: 042

REACTIONS (7)
  - FEBRILE NEUTROPENIA [None]
  - ORAL INFECTION [None]
  - NAUSEA [None]
  - RENAL FAILURE [None]
  - RASH [None]
  - NODULE [None]
  - VOMITING [None]
